FAERS Safety Report 17996576 (Version 1)
Quarter: 2020Q3

REPORT INFORMATION
  Report Type: Spontaneous
  Country: CA (occurrence: CA)
  Receive Date: 20200709
  Receipt Date: 20200709
  Transmission Date: 20201103
  Serious: Yes (Life-Threatening)
  Sender: FDA-Public Use
  Company Number: CA-TEVA-2020-CA-1797296

PATIENT
  Age: 1 Year
  Sex: Male
  Weight: 10 kg

DRUGS (36)
  1. ETOPOSIDE. [Suspect]
     Active Substance: ETOPOSIDE
     Route: 042
  2. CYTARABINE INJECTION [Suspect]
     Active Substance: CYTARABINE
     Route: 037
  3. CYTARABINE INJECTION [Suspect]
     Active Substance: CYTARABINE
     Route: 042
  4. DAUNOMYCIN /00128201/ [Suspect]
     Active Substance: DAUNORUBICIN
     Route: 042
  5. HEPARIN CALCIUM [Concomitant]
     Active Substance: HEPARIN CALCIUM
  6. METHYLPREDNISOLONE NOS [Concomitant]
     Active Substance: METHYLPREDNISOLONE
  7. METRONIDAZOLE. [Concomitant]
     Active Substance: METRONIDAZOLE
  8. ETOPOSIDE. [Suspect]
     Active Substance: ETOPOSIDE
     Route: 042
  9. CYTARABINE INJECTION [Suspect]
     Active Substance: CYTARABINE
     Route: 042
  10. ALLOPURINOL. [Concomitant]
     Active Substance: ALLOPURINOL
  11. CYTARABINE INJECTION [Suspect]
     Active Substance: CYTARABINE
     Route: 037
  12. LORAZEPAM. [Concomitant]
     Active Substance: LORAZEPAM
  13. ONDANSETRON [Concomitant]
     Active Substance: ONDANSETRON
  14. CYTARABINE INJECTION [Suspect]
     Active Substance: CYTARABINE
     Route: 042
  15. DIMENHYDRINATE. [Concomitant]
     Active Substance: DIMENHYDRINATE
  16. MEROPENEM. [Concomitant]
     Active Substance: MEROPENEM
  17. CYTARABINE INJECTION [Suspect]
     Active Substance: CYTARABINE
     Route: 037
  18. MITOXANTRONE [Suspect]
     Active Substance: MITOXANTRONE HYDROCHLORIDE
     Indication: ACUTE MYELOID LEUKAEMIA
     Route: 042
  19. ACETAMINOPHEN. [Concomitant]
     Active Substance: ACETAMINOPHEN
  20. CIPROFLOXACIN. [Concomitant]
     Active Substance: CIPROFLOXACIN
  21. FUROSEMIDE. [Concomitant]
     Active Substance: FUROSEMIDE
  22. MORPHINE SULFATE INJ USP [Concomitant]
     Active Substance: MORPHINE SULFATE
  23. PREDNISONE. [Concomitant]
     Active Substance: PREDNISONE
  24. CYTARABINE INJECTION [Suspect]
     Active Substance: CYTARABINE
     Route: 042
  25. DAUNOMYCIN /00128201/ [Suspect]
     Active Substance: DAUNORUBICIN
     Indication: ACUTE MYELOID LEUKAEMIA
     Route: 042
  26. CETIRIZINE [Concomitant]
     Active Substance: CETIRIZINE HYDROCHLORIDE
  27. POLYETHYLENE GLYCOL [Concomitant]
     Active Substance: POLYETHYLENE GLYCOLS
  28. ALTEPLASE (T?PA) [Concomitant]
  29. FLUCONAZOLE. [Concomitant]
     Active Substance: FLUCONAZOLE
  30. METOCLOPRAMIDE. [Concomitant]
     Active Substance: METOCLOPRAMIDE
  31. RANITIDINE. [Concomitant]
     Active Substance: RANITIDINE
  32. ZINC. [Concomitant]
     Active Substance: ZINC
  33. ETOPOSIDE. [Suspect]
     Active Substance: ETOPOSIDE
     Indication: ACUTE MYELOID LEUKAEMIA
     Route: 042
  34. MYCAMINE [Concomitant]
     Active Substance: MICAFUNGIN SODIUM
  35. SULFAMETHOXAZOLE AND TRIMETHOPRIM [Concomitant]
     Active Substance: SULFAMETHOXAZOLE\TRIMETHOPRIM
  36. VANCOMYCIN [Concomitant]
     Active Substance: VANCOMYCIN

REACTIONS (4)
  - Aplastic anaemia [Unknown]
  - Platelet transfusion [Unknown]
  - Febrile neutropenia [Unknown]
  - Bacteraemia [Unknown]
